FAERS Safety Report 6031258-3 (Version None)
Quarter: 2009Q1

REPORT INFORMATION
  Report Type: 
  Country: None (occurrence: None)
  Receive Date: 20090108
  Receipt Date: 20081230
  Transmission Date: 20090719
  Serious: Yes (Hospitalization)
  Sender: FDA-Public Use
  Company Number: US-BIOGENIDEC-2008BI022825

PATIENT
  Age: 57 Year
  Sex: Male
  Weight: 88 kg

DRUGS (2)
  1. AVONEX [Suspect]
     Indication: MULTIPLE SCLEROSIS
     Route: 030
     Dates: start: 19980701
  2. AVONEX [Suspect]
     Route: 030

REACTIONS (1)
  - PROSTATE CANCER [None]
